FAERS Safety Report 6338476-5 (Version None)
Quarter: 2009Q3

REPORT INFORMATION
  Report Type: 
  Country: None (occurrence: None)
  Receive Date: 20090901
  Receipt Date: 20090818
  Transmission Date: 20100115
  Serious: Yes (Hospitalization)
  Sender: FDA-Public Use
  Company Number: PAR_03147_2009

PATIENT
  Age: 82 Year
  Sex: Female

DRUGS (5)
  1. IBUPROFEN [Suspect]
     Indication: PAIN
     Dosage: (600 MG ORAL)
     Route: 048
     Dates: start: 20090727, end: 20090729
  2. IBUPROFEN [Suspect]
     Indication: PAIN
     Dosage: (1200 MG ORAL)
     Route: 048
     Dates: start: 20090707, end: 20090726
  3. ASPIRIN [Concomitant]
  4. BIPRETERAX [Concomitant]
  5. PANTOZOL /01263202/ [Concomitant]

REACTIONS (3)
  - COLITIS [None]
  - DIVERTICULUM [None]
  - HAEMORRHOIDS [None]
